FAERS Safety Report 16301084 (Version 1)
Quarter: 2019Q2

REPORT INFORMATION
  Report Type: Spontaneous
  Country: US (occurrence: US)
  Receive Date: 20190510
  Receipt Date: 20190510
  Transmission Date: 20190711
  Serious: Yes (Death, Other)
  Sender: FDA-Public Use
  Company Number: US-GILEAD-2019-0406819

PATIENT
  Age: 79 Year
  Sex: Male
  Weight: 71.9 kg

DRUGS (1)
  1. YESCARTA [Suspect]
     Active Substance: AXICABTAGENE CILOLEUCEL
     Indication: DIFFUSE LARGE B-CELL LYMPHOMA
     Dosage: UNK
     Route: 042
     Dates: start: 20190122, end: 20190122

REACTIONS (3)
  - Cytokine release syndrome [Unknown]
  - Neurotoxicity [Unknown]
  - Lymphoma [Fatal]

NARRATIVE: CASE EVENT DATE: 20190128
